FAERS Safety Report 15797246 (Version 3)
Quarter: 2019Q1

REPORT INFORMATION
  Report Type: Report from Study
  Country: US (occurrence: US)
  Receive Date: 20190108
  Receipt Date: 20190301
  Transmission Date: 20190417
  Serious: Yes (Other)
  Sender: FDA-Public Use
  Company Number: PHEH2018US055713

PATIENT
  Sex: Male

DRUGS (3)
  1. TRIAMCINOLONE [Concomitant]
     Active Substance: TRIAMCINOLONE
     Indication: PRODUCT USED FOR UNKNOWN INDICATION
     Route: 065
  2. COSENTYX [Suspect]
     Active Substance: SECUKINUMAB
     Indication: PSORIASIS
  3. COSENTYX [Suspect]
     Active Substance: SECUKINUMAB
     Indication: JUVENILE PSORIATIC ARTHRITIS
     Dosage: 300 MG, QMO
     Route: 058
     Dates: start: 20181128

REACTIONS (11)
  - Psoriasis [Unknown]
  - Influenza like illness [Unknown]
  - Product use in unapproved indication [Unknown]
  - Condition aggravated [Unknown]
  - Fatigue [Unknown]
  - Juvenile psoriatic arthritis [Unknown]
  - Injection site pain [Unknown]
  - Tooth infection [Unknown]
  - Malaise [Unknown]
  - Sinusitis [Unknown]
  - Stress [Unknown]
